FAERS Safety Report 7950387-8 (Version None)
Quarter: 2011Q4

REPORT INFORMATION
  Report Type: 
  Country: None (occurrence: None)
  Receive Date: 20111130
  Receipt Date: 20111124
  Transmission Date: 20120403
  Serious: Yes (Hospitalization)
  Sender: FDA-Public Use
  Company Number: ES-PFIZER INC-2010159042

PATIENT
  Age: 70 Year
  Sex: Female
  Weight: 76 kg

DRUGS (3)
  1. MICARDIS [Concomitant]
     Indication: HYPERTENSION
     Dosage: 40 MG, 1X/DAY
     Route: 048
  2. AROMASIN [Suspect]
     Indication: BREAST CANCER
     Dosage: 25 MG, 1X/DAY
     Route: 048
     Dates: start: 20100830, end: 20101110
  3. IBUPROFEN [Concomitant]
     Indication: OSTEOARTHRITIS
     Dosage: 600 MG, 3X/DAY ON DEMAND
     Route: 048

REACTIONS (5)
  - MALAISE [None]
  - ANAEMIA [None]
  - PYREXIA [None]
  - LEUKOPENIA [None]
  - ASTHENIA [None]
